FAERS Safety Report 19089602 (Version 2)
Quarter: 2021Q2

REPORT INFORMATION
  Report Type: Report from Study
  Country: TZ (occurrence: TZ)
  Receive Date: 20210403
  Receipt Date: 20210512
  Transmission Date: 20210717
  Serious: Yes (Hospitalization, Other)
  Sender: FDA-Public Use
  Company Number: TZ-CIPLA LTD.-2021TZ02434

PATIENT

DRUGS (4)
  1. LOPINAVIR/RITONAVIR [Suspect]
     Active Substance: LOPINAVIR\RITONAVIR
     Indication: HIV INFECTION
     Dosage: 1 DOSAGE FORM, BID (200/50 MG)
     Route: 048
     Dates: start: 20180406, end: 20180726
  2. ABACAVIR/LAMIVUDINE [Suspect]
     Active Substance: ABACAVIR\LAMIVUDINE
     Dosage: 1 DOSAGE FORM, BID (180/90 MG)
     Route: 048
     Dates: start: 20180726, end: 20190404
  3. LOPINAVIR/RITONAVIR [Suspect]
     Active Substance: LOPINAVIR\RITONAVIR
     Dosage: 1 DOSAGE FORM, BID (240/60 MG)
     Route: 048
     Dates: start: 20180406, end: 20190404
  4. ABACAVIR/LAMIVUDINE [Suspect]
     Active Substance: ABACAVIR\LAMIVUDINE
     Indication: HIV INFECTION
     Dosage: 1 DOSAGE FORM, BID (75/150 MG)
     Route: 048
     Dates: start: 20180406, end: 20180726

REACTIONS (1)
  - Sepsis [Recovered/Resolved]

NARRATIVE: CASE EVENT DATE: 20190128
